FAERS Safety Report 6584496-5 (Version None)
Quarter: 2010Q1

REPORT INFORMATION
  Report Type: 
  Country: None (occurrence: None)
  Receive Date: 20100217
  Receipt Date: 20100208
  Transmission Date: 20100710
  Serious: Yes (Hospitalization)
  Sender: FDA-Public Use
  Company Number: US-BIOGENIDEC-2009BI038200

PATIENT
  Age: 46 Year
  Sex: Female

DRUGS (1)
  1. TYSABRI [Suspect]
     Indication: MULTIPLE SCLEROSIS
     Route: 042
     Dates: start: 20070719

REACTIONS (4)
  - H1N1 INFLUENZA [None]
  - INFECTION SUSCEPTIBILITY INCREASED [None]
  - OPTIC NEURITIS [None]
  - UPPER RESPIRATORY TRACT INFECTION [None]
